FAERS Safety Report 7908098-0 (Version None)
Quarter: 2011Q4

REPORT INFORMATION
  Report Type: 
  Country: None (occurrence: None)
  Receive Date: 20111111
  Receipt Date: 20111028
  Transmission Date: 20120403
  Serious: Yes (Death, Life-Threatening, Other)
  Sender: FDA-Public Use
  Company Number: JP-RANBAXY-2011RR-50083

PATIENT
  Sex: Male

DRUGS (16)
  1. ADEROXAL [Suspect]
     Indication: PRODUCT USED FOR UNKNOWN INDICATION
     Dosage: 0.1 G, TID
     Route: 048
     Dates: start: 20101007, end: 20101008
  2. ENSURE [Concomitant]
     Indication: PRODUCT USED FOR UNKNOWN INDICATION
     Dosage: 250 ML, BID
     Route: 048
     Dates: start: 20101007, end: 20101101
  3. RIFADIN [Suspect]
     Indication: PULMONARY TUBERCULOSIS
     Dosage: 450 MG/DAY
     Route: 048
     Dates: start: 20101005, end: 20101008
  4. NEOPAREN NO. 2 [Concomitant]
     Indication: PRODUCT USED FOR UNKNOWN INDICATION
     Dosage: 1000 ML/DAY
     Route: 042
     Dates: start: 20101006, end: 20101014
  5. ISONIAZID [Suspect]
     Dosage: 0.25 G, QD
     Route: 048
     Dates: start: 20101007, end: 20101008
  6. LEVOFLOXACIN [Suspect]
     Indication: PYREXIA
  7. FAMOTIDINE [Suspect]
     Indication: PRODUCT USED FOR UNKNOWN INDICATION
     Dosage: 20 MG/DAY
     Route: 048
     Dates: start: 20101007, end: 20101008
  8. ETHAMBUTOL HYDROCHLORIDE [Suspect]
     Indication: PYREXIA
     Dosage: 625 MG/DAY
     Route: 048
     Dates: start: 20101022, end: 20101027
  9. PHYSIO 35 [Concomitant]
     Indication: PRODUCT USED FOR UNKNOWN INDICATION
     Dosage: 500 ML/DAY
     Route: 042
     Dates: start: 20101014, end: 20101031
  10. CIPROFLOXACIN HCL [Suspect]
     Indication: PRODUCT USED FOR UNKNOWN INDICATION
     Dosage: 300 MG, BID
     Route: 042
     Dates: start: 20101005, end: 20101008
  11. ISONIAZID [Suspect]
     Indication: PULMONARY TUBERCULOSIS
     Dosage: 250 MG/DAY
     Route: 042
     Dates: start: 20101005, end: 20101006
  12. NEOPAREN NO. 2 [Concomitant]
     Dosage: 1000 ML/DAY
     Route: 042
     Dates: start: 20101031, end: 20101123
  13. NEOPHAGEN C [Concomitant]
     Indication: ASPARTATE AMINOTRANSFERASE INCREASED
     Dosage: 80 ML/DAY
     Route: 065
     Dates: start: 20101110
  14. NEOPHAGEN C [Concomitant]
     Indication: ALANINE AMINOTRANSFERASE INCREASED
  15. LEVOFLOXACIN [Suspect]
     Indication: PULMONARY TUBERCULOSIS
     Dosage: 5 G/DAY
     Route: 048
     Dates: start: 20101022, end: 20101027
  16. TWINPAL [Concomitant]
     Indication: PRODUCT USED FOR UNKNOWN INDICATION
     Dosage: 500 ML/DAY
     Route: 042
     Dates: start: 20101014, end: 20101031

REACTIONS (1)
  - LIVER DISORDER [None]
